FAERS Safety Report 9412490 (Version 1)
Quarter: 2013Q3

REPORT INFORMATION
  Report Type: Spontaneous
  Country: JP (occurrence: None)
  Receive Date: 20130702
  Receipt Date: 20130702
  Transmission Date: 20140515
  Serious: Yes (Hospitalization, Other)
  Sender: FDA-Public Use
  Company Number: TCI2011A06440

PATIENT
  Age: 68 Year
  Sex: Male

DRUGS (1)
  1. NESINA [Suspect]
     Indication: DIABETES MELLITUS
     Route: 048
     Dates: start: 20110802, end: 20111129

REACTIONS (5)
  - Interstitial lung disease [None]
  - Rash [None]
  - Headache [None]
  - Arthralgia [None]
  - Pruritus [None]
